FAERS Safety Report 21519082 (Version 1)
Quarter: 2022Q4

REPORT INFORMATION
  Report Type: Spontaneous
  Country: US (occurrence: US)
  Receive Date: 20221028
  Receipt Date: 20221028
  Transmission Date: 20230113
  Serious: No
  Sender: FDA-Public Use
  Company Number: ALC2021US007110

PATIENT
  Age: 7 Decade
  Sex: Female

DRUGS (1)
  1. INVELTYS [Suspect]
     Active Substance: LOTEPREDNOL ETABONATE
     Indication: Eye irritation
     Dosage: UNK UNK, 2X/DAY
     Route: 047
     Dates: start: 202111, end: 2021

REACTIONS (4)
  - Eye irritation [Unknown]
  - Chest discomfort [Unknown]
  - Dyspnoea [Unknown]
  - Infection [Unknown]

NARRATIVE: CASE EVENT DATE: 20210101
